FAERS Safety Report 7692237-3 (Version None)
Quarter: 2011Q3

REPORT INFORMATION
  Report Type: 
  Country: None (occurrence: None)
  Receive Date: 20110818
  Receipt Date: 20110809
  Transmission Date: 20111222
  Serious: Yes (Other)
  Sender: FDA-Public Use
  Company Number: US-ASTRAZENECA-2011SE47904

PATIENT
  Age: 33 Year
  Sex: Female

DRUGS (3)
  1. PAXIL [Suspect]
     Indication: BIPOLAR DISORDER
     Route: 065
     Dates: start: 20090101
  2. LAMICTAL [Suspect]
     Indication: BIPOLAR DISORDER
     Route: 065
  3. SEROQUEL [Suspect]
     Indication: BIPOLAR DISORDER
     Route: 048
     Dates: start: 20110101

REACTIONS (2)
  - ABORTION SPONTANEOUS [None]
  - MATERNAL EXPOSURE DURING PREGNANCY [None]
